FAERS Safety Report 12885963 (Version 3)
Quarter: 2016Q4

REPORT INFORMATION
  Report Type: Report from Study
  Country: KR (occurrence: KR)
  Receive Date: 20161026
  Receipt Date: 20161208
  Transmission Date: 20170207
  Serious: Yes (Life-Threatening, Hospitalization)
  Sender: FDA-Public Use
  Company Number: KR-CELGENEUS-KOR-2016103152

PATIENT
  Age: 70 Year
  Sex: Male
  Weight: 53.1 kg

DRUGS (33)
  1. PROSCAR [Concomitant]
     Active Substance: FINASTERIDE
     Indication: BENIGN PROSTATIC HYPERPLASIA
     Dosage: 5MG
     Route: 048
     Dates: start: 20160829
  2. MAGO [Concomitant]
     Indication: CONSTIPATION
     Dosage: 1500MG
     Route: 048
     Dates: start: 20160915, end: 20160915
  3. DULCOLAX NOS [Concomitant]
     Active Substance: BISACODYL OR DOCUSATE SODIUM
     Dosage: 10MG
     Route: 054
     Dates: start: 20160922, end: 20160922
  4. BUSCOPAN [Concomitant]
     Active Substance: BUTYLSCOPOLAMINE BROMIDE
     Indication: HAEMATURIA
     Dosage: 20MG
     Route: 041
     Dates: start: 20160922, end: 20160925
  5. JANUVIA [Concomitant]
     Active Substance: SITAGLIPTIN PHOSPHATE
     Indication: DIABETES MELLITUS
     Dosage: 50MG
     Route: 048
     Dates: start: 20160905, end: 20160908
  6. LANSTON [Concomitant]
     Active Substance: LANSOPRAZOLE
     Indication: PROPHYLAXIS AGAINST GASTROINTESTINAL ULCER
     Dosage: 15MG
     Route: 048
     Dates: start: 20161004
  7. REVLIMID [Suspect]
     Active Substance: LENALIDOMIDE
     Indication: PLASMA CELL MYELOMA
     Dosage: 10MG
     Route: 048
     Dates: start: 20160822, end: 20160831
  8. DEXAMETHASONE. [Concomitant]
     Active Substance: DEXAMETHASONE
     Dosage: 40MG
     Route: 041
     Dates: start: 20160830, end: 20160902
  9. HARNAL [Concomitant]
     Active Substance: TAMSULOSIN HYDROCHLORIDE
     Indication: BENIGN PROSTATIC HYPERPLASIA
     Dosage: 0.2MG
     Route: 048
     Dates: start: 20160902
  10. DUPHALAC [Concomitant]
     Active Substance: LACTULOSE
     Indication: CONSTIPATION
     Dosage: 30ML
     Route: 048
     Dates: start: 20160901, end: 20160907
  11. PANTOLINE [Concomitant]
     Active Substance: PANTOPRAZOLE SODIUM
     Indication: GASTRIC DISORDER
     Dosage: 20MG
     Route: 048
     Dates: start: 20160820, end: 20160919
  12. DIAMEDY [Concomitant]
     Indication: DIABETES MELLITUS
     Dosage: 2MG
     Route: 048
     Dates: start: 20160929, end: 20160929
  13. BASEN [Concomitant]
     Active Substance: VOGLIBOSE
     Indication: DIABETES MELLITUS
     Dosage: 0.9MG
     Route: 048
  14. COZAAR [Concomitant]
     Active Substance: LOSARTAN POTASSIUM
     Indication: HYPERTENSION
     Dosage: 50MG
     Route: 048
  15. SIMVAST [Concomitant]
     Indication: HYPERLIPIDAEMIA
     Dosage: 20MG
     Route: 048
  16. DIABEX [Concomitant]
     Active Substance: METFORMIN HYDROCHLORIDE
     Indication: DIABETES MELLITUS
     Dosage: 1000MG
     Route: 048
  17. VENTOLIN [Concomitant]
     Active Substance: ALBUTEROL SULFATE
     Indication: ASTHMA
     Dosage: 10ML
     Route: 065
     Dates: start: 20160926, end: 20161006
  18. ASPIRIN. [Concomitant]
     Active Substance: ASPIRIN
     Indication: HYPERTENSION
     Dosage: 100MG
     Route: 048
     Dates: end: 20160913
  19. DULCOLAX NOS [Concomitant]
     Active Substance: BISACODYL OR DOCUSATE SODIUM
     Indication: CONSTIPATION
     Dosage: 10MG
     Route: 054
     Dates: start: 20160909, end: 20160909
  20. DEXAMETHASONE. [Concomitant]
     Active Substance: DEXAMETHASONE
     Indication: PLASMA CELL MYELOMA
     Dosage: 40MG
     Route: 048
     Dates: start: 20160822, end: 20160822
  21. XATRAL [Concomitant]
     Active Substance: ALFUZOSIN
     Indication: BENIGN PROSTATIC HYPERPLASIA
     Dosage: 10MG
     Route: 048
     Dates: start: 20160829, end: 20160901
  22. DUPHALAC EASY [Concomitant]
     Indication: CONSTIPATION
     Dosage: 45ML
     Route: 048
     Dates: start: 20160913, end: 20161005
  23. ULCERMIN [Concomitant]
     Active Substance: SUCRALFATE
     Indication: GASTRIC DISORDER
     Dosage: 60ML
     Route: 048
     Dates: start: 20160818, end: 20160901
  24. CAFSOL [Concomitant]
     Indication: DECREASED APPETITE
     Dosage: 500ML
     Route: 041
     Dates: start: 20160819, end: 20160819
  25. DILATREND [Concomitant]
     Active Substance: CARVEDILOL
     Indication: HYPERTENSION
     Dosage: 6.25MG
     Route: 048
     Dates: start: 20160924
  26. LASIX [Concomitant]
     Active Substance: FUROSEMIDE
     Indication: MYOCARDIAL ISCHAEMIA
     Dosage: 20MG
     Route: 048
     Dates: start: 20161007
  27. ULTRACET [Concomitant]
     Active Substance: ACETAMINOPHEN\TRAMADOL HYDROCHLORIDE
     Indication: PAIN IN EXTREMITY
     Dosage: 3 TABS
     Route: 048
     Dates: start: 20160929
  28. LYRICA [Concomitant]
     Active Substance: PREGABALIN
     Indication: PAIN IN EXTREMITY
     Dosage: 75MG
     Route: 048
     Dates: start: 20160929
  29. DEXAMETHASONE. [Concomitant]
     Active Substance: DEXAMETHASONE
     Dosage: NOT PROVIDED
     Route: 065
     Dates: start: 20151116, end: 20160329
  30. MAGNESIUM OXIDE. [Concomitant]
     Active Substance: MAGNESIUM OXIDE
     Indication: CONSTIPATION
     Dosage: 750MG
     Route: 048
     Dates: start: 20160904, end: 20160904
  31. BUSCOPAN [Concomitant]
     Active Substance: BUTYLSCOPOLAMINE BROMIDE
     Indication: GASTRIC DISORDER
     Dosage: 20MG
     Route: 041
     Dates: start: 20160819, end: 20160819
  32. JANUVIA [Concomitant]
     Active Substance: SITAGLIPTIN PHOSPHATE
     Dosage: 100MG
     Route: 048
     Dates: start: 20160909, end: 20160913
  33. ATROVENT [Concomitant]
     Active Substance: IPRATROPIUM BROMIDE
     Indication: ASTHMA
     Dosage: 8ML
     Route: 065
     Dates: start: 20160926, end: 20161006

REACTIONS (3)
  - Pneumonia [Recovered/Resolved]
  - Hypercalcaemia [Recovered/Resolved]
  - Urinary tract infection [Recovered/Resolved]

NARRATIVE: CASE EVENT DATE: 20160829
